FAERS Safety Report 8326069 (Version 3)
Quarter: 2013Q1

REPORT INFORMATION
  Report Type: Spontaneous
  Country: GB (occurrence: GB)
  Receive Date: 20120106
  Receipt Date: 20130117
  Transmission Date: 20140127
  Serious: Yes (Death, Hospitalization)
  Sender: FDA-Public Use
  Company Number: PHFR2012GB000491

PATIENT
  Age: 40 Year
  Sex: Male

DRUGS (1)
  1. CLOZARIL [Suspect]
     Indication: SCHIZOPHRENIA
     Dates: start: 20090921

REACTIONS (5)
  - Hypothermia [Fatal]
  - Nasopharyngitis [Fatal]
  - Ketoacidosis [Fatal]
  - Blood ketone body increased [Fatal]
  - Malaise [Unknown]
